FAERS Safety Report 10832019 (Version 10)
Quarter: 2015Q3

REPORT INFORMATION
  Report Type: Report from Study
  Country: IL (occurrence: IL)
  Receive Date: 20150219
  Receipt Date: 20150720
  Transmission Date: 20151125
  Serious: Yes (Death, Hospitalization)
  Sender: FDA-Public Use
  Company Number: IL-009507513-1502ISR006762

PATIENT
  Age: 61 Year
  Sex: Female
  Weight: 69.5 kg

DRUGS (21)
  1. OXYCOD [Concomitant]
     Indication: ANALGESIC THERAPY
     Dosage: 16 ML, QD
     Route: 048
     Dates: start: 20140901
  2. OPTALGIN [Concomitant]
     Active Substance: METAMIZOLE
     Indication: ANALGESIC THERAPY
     Dosage: 8 ML, QD
     Route: 048
     Dates: start: 20140901
  3. CIPRALEX [Concomitant]
     Active Substance: ESCITALOPRAM OXALATE
     Indication: PROPHYLAXIS
     Dosage: 10 MG, QD, FORMULATION: PILL
     Route: 048
     Dates: start: 20141020
  4. VITAMIN D [Concomitant]
     Active Substance: CHOLECALCIFEROL
     Indication: PROPHYLAXIS
     Dosage: 400 IU, QD, FORMULATION: PILL
     Route: 048
     Dates: start: 20141105
  5. CALCIUM (UNSPECIFIED) [Concomitant]
     Active Substance: CALCIUM
     Indication: PROPHYLAXIS
     Dosage: 500 MG, QD, FORMULATION: PILL
     Route: 048
     Dates: start: 20141105
  6. HEMP [Concomitant]
     Active Substance: HEMP
     Indication: PAIN IN EXTREMITY
     Dosage: TOTAL DAILY DOSE: 1 G, FORMULATION: INHALANT
     Route: 055
     Dates: start: 20141201, end: 20150210
  7. CLEXANE (ENOXAPARIN SODIUM) [Concomitant]
     Active Substance: ENOXAPARIN SODIUM
     Indication: PROPHYLAXIS
     Dosage: 40 MG, QD
     Route: 058
     Dates: start: 20140901
  8. MAGNESIUM DIASPORAL [Concomitant]
     Indication: BLOOD MAGNESIUM DECREASED
     Dosage: TOTAL DAILY DOSE 300MG, TID
     Route: 048
     Dates: start: 20150208
  9. OXYCONTIN [Concomitant]
     Active Substance: OXYCODONE HYDROCHLORIDE
     Indication: PAIN
     Dosage: 20 MG, QD; FORMULATION: PILL
     Route: 048
     Dates: start: 20150203
  10. TARGIN [Concomitant]
     Active Substance: NALOXONE HYDROCHLORIDE\OXYCODONE HYDROCHLORIDE
     Indication: BONE PAIN
     Dosage: 30 MG, BID
     Route: 048
     Dates: start: 20141019
  11. IRON (UNSPECIFIED) [Concomitant]
     Active Substance: IRON
     Indication: HAEMOGLOBIN DECREASED
     Dosage: TOTAL DAILY DOSE 30MG, BID, FORMULATION: PILL
     Route: 048
     Dates: start: 20141207
  12. NAPROXEN. [Concomitant]
     Active Substance: NAPROXEN
     Indication: BONE PAIN
     Dosage: TOTAL DAILY DOSE 750 MG, QD
     Route: 048
     Dates: start: 20150125
  13. FUSID (FUROSEMIDE) [Concomitant]
     Active Substance: FUROSEMIDE
     Indication: PULMONARY CONGESTION
     Dosage: 40 MG, ONCE
     Route: 042
     Dates: start: 20150210, end: 20150210
  14. FENTANYL. [Concomitant]
     Active Substance: FENTANYL
     Indication: BONE PAIN
     Dosage: TOTAL DAILY DOSE 0.05 MG, PRN
     Route: 003
     Dates: start: 20150209
  15. FOLIC ACID. [Concomitant]
     Active Substance: FOLIC ACID
     Indication: PROPHYLAXIS
     Dosage: 0.4 MG, QD
     Route: 048
     Dates: start: 20141105
  16. PEMBROLIZUMAB. [Suspect]
     Active Substance: PEMBROLIZUMAB
     Indication: NON-SMALL CELL LUNG CANCER
     Dosage: 200 MG, Q3W
     Route: 042
     Dates: start: 20150210, end: 20150210
  17. FENTANYL CITRATE. [Concomitant]
     Active Substance: FENTANYL CITRATE
     Indication: BONE PAIN
     Dosage: TOTAL DAILY DOSE: 1.2 MG, PRN
     Route: 048
     Dates: start: 20141204
  18. CYANOCOBALAMIN. [Concomitant]
     Active Substance: CYANOCOBALAMIN
     Indication: PROPHYLAXIS
     Dosage: TOTAL DAILY DOSE 1000 MG, PRN
     Route: 030
     Dates: start: 20141105
  19. OMEPRADEX [Concomitant]
     Active Substance: OMEPRAZOLE
     Indication: PROPHYLAXIS
     Dosage: 20 MG, QD
     Route: 048
     Dates: start: 20141105
  20. BLOOD CELLS, RED [Concomitant]
     Active Substance: HUMAN BLOOD CELLS
     Indication: ANAEMIA
     Dosage: 1 IU, ONCE
     Route: 042
     Dates: start: 20150203, end: 20150203
  21. DEXAMETHASONE. [Concomitant]
     Active Substance: DEXAMETHASONE
     Indication: PREMEDICATION
     Dosage: TOTAL DAILY DOSE: 4 MG, PRN
     Route: 048
     Dates: start: 20141112

REACTIONS (2)
  - Palpitations [Not Recovered/Not Resolved]
  - Malignant neoplasm progression [Fatal]

NARRATIVE: CASE EVENT DATE: 20150210
